FAERS Safety Report 23030858 (Version 10)
Quarter: 2024Q3

REPORT INFORMATION
  Report Type: Report from Study
  Country: US (occurrence: US)
  Receive Date: 20231005
  Receipt Date: 20240705
  Transmission Date: 20241017
  Serious: Yes (Other)
  Sender: ACADIA PHARMACEUTICALS
  Company Number: US-ACADIA PHARMACEUTICALS INC.-ACA-2023-TRF-004045

PATIENT
  Age: 6 Year
  Sex: Female

DRUGS (7)
  1. DAYBUE [Suspect]
     Active Substance: TROFINETIDE
     Indication: Rett syndrome
     Dosage: 30 MILLILITER, BID, VIA G TUBE
     Dates: start: 202308
  2. DAYBUE [Suspect]
     Active Substance: TROFINETIDE
     Dosage: 32 MILLILITER, BID VIA G TUBE
  3. DAYBUE [Suspect]
     Active Substance: TROFINETIDE
     Dosage: 40 MILLILITER, BID VIA G TUBE
  4. DAYBUE [Suspect]
     Active Substance: TROFINETIDE
     Dosage: 30 MILLILITER, BID VIA G TUBE
  5. DAYBUE [Suspect]
     Active Substance: TROFINETIDE
     Dosage: 25 MILLILITER, BID VIA G TUBE
  6. DAYBUE [Suspect]
     Active Substance: TROFINETIDE
     Dosage: 40 MILLILITER BID, VIA G TUBE
  7. DAYBUE [Suspect]
     Active Substance: TROFINETIDE
     Dosage: 30 MILLILITER, BID VIA G-TUBE

REACTIONS (13)
  - Pneumonia [Unknown]
  - Gastrointestinal disorder [Not Recovered/Not Resolved]
  - Viral infection [Not Recovered/Not Resolved]
  - Underdose [Not Recovered/Not Resolved]
  - Viral infection [Not Recovered/Not Resolved]
  - Influenza [Recovered/Resolved]
  - Nasopharyngitis [Not Recovered/Not Resolved]
  - Pyrexia [Recovered/Resolved]
  - Diarrhoea [Not Recovered/Not Resolved]
  - Diarrhoea [Not Recovered/Not Resolved]
  - Diarrhoea [Unknown]
  - Diarrhoea [Not Recovered/Not Resolved]
  - Diarrhoea [Recovering/Resolving]

NARRATIVE: CASE EVENT DATE: 20230801
